FAERS Safety Report 8667609 (Version 2)
Quarter: 2012Q4

REPORT INFORMATION
  Report Type: 
  Country: DK (occurrence: DK)
  Receive Date: 20120717
  Receipt Date: 20121003
  Transmission Date: 20130627
  Serious: Yes (Hospitalization)
  Sender: FDA-Public Use
  Company Number: DK-009507513-1207DNK003369

PATIENT
  Age: 90 Year
  Sex: Female

DRUGS (9)
  1. COZAAR 100MG, COMPRIM? PELLICUL? [Suspect]
     Dosage: UNK
     Route: 048
     Dates: end: 20120625
  2. ENALAPRIL [Suspect]
     Indication: HYPERTENSION
     Dosage: STYRKE: 5 mg
     Route: 048
     Dates: end: 20120625
  3. ISOPTIN [Suspect]
     Indication: ANGINA PECTORIS
     Dosage: STYRKE: 120 mg
     Route: 048
     Dates: end: 20120625
  4. DIGOXIN [Suspect]
     Indication: ATRIAL FLUTTER
     Dosage: 125
     Route: 048
  5. SIMVASTATIN [Concomitant]
  6. FURIX [Concomitant]
  7. HJERTEMAGNYL [Concomitant]
  8. SERETIDE DISKUS [Concomitant]
  9. KALEORID [Concomitant]

REACTIONS (4)
  - Atrioventricular block complete [Recovered/Resolved]
  - Hypotension [Recovered/Resolved]
  - Dyspnoea [Recovered/Resolved]
  - Palpitations [Recovered/Resolved]
